FAERS Safety Report 7889039-1 (Version None)
Quarter: 2011Q4

REPORT INFORMATION
  Report Type: 
  Country: None (occurrence: None)
  Receive Date: 20111103
  Receipt Date: 20111031
  Transmission Date: 20120403
  Serious: No
  Sender: FDA-Public Use
  Company Number: JP-ROCHE-756782

PATIENT
  Sex: Female

DRUGS (6)
  1. TAMIFLU [Suspect]
     Indication: INFLUENZA
     Route: 048
     Dates: start: 20091024, end: 20091028
  2. ERYTHROCIN LACTOBIONATE [Concomitant]
     Route: 048
     Dates: start: 20091025, end: 20091031
  3. BISOLVON [Concomitant]
     Route: 048
     Dates: start: 20091024, end: 20091028
  4. ACETAMINOPHEN [Concomitant]
     Route: 048
     Dates: start: 20091024, end: 20091028
  5. AMOLIN (JAPAN) [Concomitant]
     Dates: start: 20091024, end: 20091028
  6. DUVADILAN [Concomitant]
     Dates: start: 20101024, end: 20101028

REACTIONS (2)
  - MATERNAL EXPOSURE DURING PREGNANCY [None]
  - NORMAL NEWBORN [None]
